FAERS Safety Report 22642977 (Version 1)
Quarter: 2023Q2

REPORT INFORMATION
  Report Type: Spontaneous
  Country: US (occurrence: US)
  Receive Date: 20230627
  Receipt Date: 20230627
  Transmission Date: 20230721
  Serious: No
  Sender: FDA-Public Use
  Company Number: US-ALCON LABORATORIES-ALC2023US001581

PATIENT
  Age: 69 Year
  Sex: Female

DRUGS (3)
  1. OLOPATADINE [Suspect]
     Active Substance: OLOPATADINE
     Indication: Hypersensitivity
     Dosage: 1 DRP, BID (5 ML)
     Dates: start: 20230303, end: 20230314
  2. SYSTANE ULTRA [Suspect]
     Active Substance: POLYETHYLENE GLYCOL 400\PROPYLENE GLYCOL
     Indication: Dry eye
     Dosage: 1 DRP (WHEN NEEDED, TO EACH EYE)
     Dates: start: 20230228, end: 20230314
  3. NU-SEALS [Concomitant]
     Indication: Product used for unknown indication
     Dosage: UNK
     Route: 065

REACTIONS (4)
  - Hypoaesthesia oral [Recovering/Resolving]
  - Eye irritation [Recovering/Resolving]
  - Headache [Recovering/Resolving]
  - Vision blurred [Recovering/Resolving]

NARRATIVE: CASE EVENT DATE: 20230301
